FAERS Safety Report 6160306-5 (Version None)
Quarter: 2009Q2

REPORT INFORMATION
  Report Type: 
  Country: None (occurrence: None)
  Receive Date: 20090420
  Receipt Date: 20090408
  Transmission Date: 20091009
  Serious: Yes (Hospitalization)
  Sender: FDA-Public Use
  Company Number: AU-NOVOPROD-286143

PATIENT
  Age: 64 Year
  Sex: Female
  Weight: 78 kg

DRUGS (5)
  1. NOVOSEVEN [Suspect]
     Indication: HAEMORRHAGE
     Dosage: 4.8 MG, SINGLE
     Route: 042
     Dates: start: 20081128, end: 20081128
  2. VOLTAREN [Concomitant]
  3. PROTAMINE SULFATE [Concomitant]
     Indication: HAEMORRHAGE
  4. HEPARIN [Concomitant]
     Indication: HAEMORRHAGE
  5. DDAVP [Concomitant]
     Indication: HAEMORRHAGE

REACTIONS (2)
  - CEREBROVASCULAR ACCIDENT [None]
  - DRESSLER'S SYNDROME [None]
